FAERS Safety Report 26139681 (Version 1)
Quarter: 2025Q4

REPORT INFORMATION
  Report Type: Spontaneous
  Country: US (occurrence: None)
  Receive Date: 20251209
  Receipt Date: 20251209
  Transmission Date: 20260117
  Serious: Yes (Hospitalization)
  Sender: FDA-CTU
  Company Number: None

PATIENT
  Age: 28 Year
  Sex: Female
  Weight: 58.2 kg

DRUGS (1)
  1. MIRCERA [Suspect]
     Active Substance: METHOXY POLYETHYLENE GLYCOL-EPOETIN BETA
     Dosage: OTHER QUANTITY : 200UGM/KG;?FREQUENCY : EVERY OTHER WEEK;
     Route: 042
     Dates: start: 20241209, end: 20250101

REACTIONS (8)
  - Dyspnoea [None]
  - Nausea [None]
  - Vomiting [None]
  - Tachycardia [None]
  - Anaphylactic reaction [None]
  - Therapy change [None]
  - Haemoglobin decreased [None]
  - Dialysis [None]

NARRATIVE: CASE EVENT DATE: 20251201
